FAERS Safety Report 22526860 (Version 1)
Quarter: 2023Q2

REPORT INFORMATION
  Report Type: Spontaneous
  Country: DE (occurrence: DE)
  Receive Date: 20230606
  Receipt Date: 20230606
  Transmission Date: 20230721
  Serious: Yes (Hospitalization, Other)
  Sender: FDA-Public Use
  Company Number: DE-009507513-2305DEU001556

PATIENT
  Sex: Male
  Weight: 60 kg

DRUGS (17)
  1. PIFELTRO [Suspect]
     Active Substance: DORAVIRINE
     Indication: HIV infection
     Dosage: 100 MG 1-0-0
     Route: 048
  2. MEROPENEM [Concomitant]
     Active Substance: MEROPENEM
     Dosage: 1 G 1-1-1
  3. FLUCONAZOLE [Concomitant]
     Active Substance: FLUCONAZOLE
     Dosage: 400 MG 1-0-0
  4. ATORVASTATIN [Concomitant]
     Active Substance: ATORVASTATIN
     Dosage: 40MG, 0-0-1
  5. BISOPROLOL [Concomitant]
     Active Substance: BISOPROLOL
     Dosage: 40MG, 0-0-1
  6. LEVOTHYROXINE [Concomitant]
     Active Substance: LEVOTHYROXINE
     Dosage: 75 ?G, 1-0-0
  7. SPIRONOLACTONE [Concomitant]
     Active Substance: SPIRONOLACTONE
     Dosage: 25, 1-0-0
  8. DOLUTEGRAVIR [Concomitant]
     Active Substance: DOLUTEGRAVIR
     Dosage: 50 MG 1-0-0
  9. TORSEMIDE [Concomitant]
     Active Substance: TORSEMIDE
     Dosage: 10MG 2-0-1
  10. ENOXAPARIN [Concomitant]
     Active Substance: ENOXAPARIN
     Dosage: 60 MG 1-0-1
  11. INSULIN GLARGINE [Concomitant]
     Active Substance: INSULIN GLARGINE
     Dosage: 0-0-6IE
  12. MELPERONE [Concomitant]
     Active Substance: MELPERONE
     Dosage: 5MG 0-0-1
  13. MELATONIN [Concomitant]
     Active Substance: MELATONIN
     Dosage: 2 MG 0-0-0-2
  14. POTASSIUM [Concomitant]
     Active Substance: POTASSIUM
     Dosage: POTASSIUM 20 MMOL 1-1-1
  15. ALBUTEROL [Concomitant]
     Active Substance: ALBUTEROL
     Dosage: I.V
  16. EDOXABAN [Concomitant]
     Active Substance: EDOXABAN
  17. METFORMIN [Concomitant]
     Active Substance: METFORMIN HYDROCHLORIDE

REACTIONS (8)
  - Infectious pleural effusion [Unknown]
  - Fall [Unknown]
  - Aspiration [Unknown]
  - Basal ganglia infarction [Unknown]
  - Dysphagia [Recovering/Resolving]
  - Petechiae [Unknown]
  - Hypoaesthesia [Unknown]
  - Blood HIV RNA increased [Unknown]

NARRATIVE: CASE EVENT DATE: 20230401
